FAERS Safety Report 6786801-3 (Version None)
Quarter: 2010Q2

REPORT INFORMATION
  Report Type: 
  Country: None (occurrence: None)
  Receive Date: 20100623
  Receipt Date: 20100615
  Transmission Date: 20101027
  Serious: Yes (Other)
  Sender: FDA-Public Use
  Company Number: CA-ABBOTT-10P-028-0652166-00

PATIENT
  Sex: Female

DRUGS (6)
  1. HUMIRA [Suspect]
     Indication: RHEUMATOID ARTHRITIS
     Route: 058
     Dates: start: 20100307, end: 20100502
  2. PREDNISONE [Concomitant]
     Indication: ARTHRITIS
     Dosage: 10 MG DAILY
     Route: 048
     Dates: start: 19800101
  3. LOSEC I.V. [Concomitant]
     Indication: GASTRIC DISORDER
     Dosage: 20 MG DAILY
     Route: 048
  4. ALESSE [Concomitant]
     Indication: CONTRACEPTION
     Route: 048
  5. METOPROLOL TARTRATE [Concomitant]
     Indication: TACHYCARDIA
     Route: 048
  6. AMERGE [Concomitant]
     Indication: MIGRAINE
     Route: 048

REACTIONS (1)
  - NEPHROLITHIASIS [None]
